FAERS Safety Report 24381969 (Version 2)
Quarter: 2024Q4

REPORT INFORMATION
  Report Type: Spontaneous
  Country: US (occurrence: US)
  Receive Date: 20241001
  Receipt Date: 20241119
  Transmission Date: 20250114
  Serious: No
  Sender: ROCHE
  Company Number: US-ROCHE-10000094249

PATIENT
  Sex: Female

DRUGS (3)
  1. XOLAIR PFS [Suspect]
     Active Substance: OMALIZUMAB
     Indication: Idiopathic urticaria
     Dosage: STRENGHT: 150MG/ML
     Route: 058
     Dates: start: 202107
  2. XOLAIR PFS [Suspect]
     Active Substance: OMALIZUMAB
  3. IMATINIB MESYLATE [Concomitant]
     Active Substance: IMATINIB MESYLATE

REACTIONS (2)
  - Off label use [Unknown]
  - Idiopathic urticaria [Unknown]
